FAERS Safety Report 9677776 (Version 1)
Quarter: 2013Q4

REPORT INFORMATION
  Report Type: Spontaneous
  Country: US (occurrence: None)
  Receive Date: 20131107
  Receipt Date: 20131107
  Transmission Date: 20140711
  Serious: Yes (Hospitalization)
  Sender: FDA-Public Use
  Company Number: None

PATIENT
  Age: 55 Year
  Sex: Male
  Weight: 101 kg

DRUGS (3)
  1. BACLOFEN [Suspect]
     Indication: OFF LABEL USE
     Dosage: 1 TABLET, TID, ORAL
     Route: 048
     Dates: start: 20111211
  2. BACLOFEN [Suspect]
     Indication: ALCOHOL WITHDRAWAL SYNDROME
     Dosage: 1 TABLET, TID, ORAL
     Route: 048
     Dates: start: 20111211
  3. TERAZOSIN [Concomitant]

REACTIONS (3)
  - Neurotoxicity [None]
  - Road traffic accident [None]
  - Loss of consciousness [None]
